FAERS Safety Report 23572464 (Version 1)
Quarter: 2024Q1

REPORT INFORMATION
  Report Type: Spontaneous
  Country: US (occurrence: None)
  Receive Date: 20240227
  Receipt Date: 20240227
  Transmission Date: 20240409
  Serious: No
  Sender: FDA-Public Use
  Company Number: None

PATIENT
  Age: 70 Year
  Sex: Female
  Weight: 121.5 kg

DRUGS (9)
  1. CLOBETASOL PROPIONATE [Suspect]
     Active Substance: CLOBETASOL PROPIONATE
     Indication: Skin infection
     Dosage: 1 APPLICATION DAILY TOPICAL ?
     Route: 061
  2. METOPROLOL [Concomitant]
     Active Substance: METOPROLOL
  3. IRON [Concomitant]
     Active Substance: IRON
  4. GLUCOSAMINE [Concomitant]
     Active Substance: GLUCOSAMINE
  5. CRANBERRY [Concomitant]
     Active Substance: CRANBERRY
  6. VITAMIN D3 [Concomitant]
     Active Substance: CHOLECALCIFEROL
  7. CALCIUM [Concomitant]
     Active Substance: CALCIUM
  8. MAGNESIUM [Concomitant]
     Active Substance: MAGNESIUM
  9. VITAMIN B12 [Concomitant]
     Active Substance: CYANOCOBALAMIN

REACTIONS (1)
  - Blindness unilateral [None]

NARRATIVE: CASE EVENT DATE: 20240122
